FAERS Safety Report 15762268 (Version 5)
Quarter: 2022Q2

REPORT INFORMATION
  Report Type: Report from Study
  Country: RO (occurrence: RO)
  Receive Date: 20181226
  Receipt Date: 20220623
  Transmission Date: 20220721
  Serious: Yes (Hospitalization, Other)
  Sender: FDA-Public Use
  Company Number: RO-BRISTOL-MYERS SQUIBB COMPANY-BMS-2018-091279

PATIENT
  Age: 66 Year
  Sex: Male
  Weight: 90 kg

DRUGS (9)
  1. IPILIMUMAB [Suspect]
     Active Substance: IPILIMUMAB
     Indication: Non-small cell lung cancer
     Dosage: 1 MG/KG, Q6WK?RECEIVED MOST RECENT DOSE OF STUDY THERAPY ON 11-SEP-2018
     Route: 042
     Dates: start: 20180212
  2. INSULIN NOS [Concomitant]
     Active Substance: INSULIN NOS
     Indication: Product used for unknown indication
     Dosage: 1 DF=  25 UNIT
     Route: 065
     Dates: start: 19981210
  3. METFORMIN [Concomitant]
     Active Substance: METFORMIN HYDROCHLORIDE
     Indication: Product used for unknown indication
     Dosage: 2000 MILLIGRAM
     Route: 065
     Dates: start: 19981210
  4. FENOFIBRATE [Concomitant]
     Active Substance: FENOFIBRATE
     Indication: Product used for unknown indication
     Dosage: 145 MILLIGRAM
     Route: 065
     Dates: start: 20031030
  5. FOSINOPRIL SODIUM [Concomitant]
     Active Substance: FOSINOPRIL SODIUM
     Indication: Product used for unknown indication
     Dosage: 10 MILLIGRAM
     Route: 065
     Dates: start: 20031030
  6. INDAPAMIDE [Concomitant]
     Active Substance: INDAPAMIDE
     Indication: Product used for unknown indication
     Dosage: 2.5 MILLIGRAM
     Route: 065
     Dates: start: 20031030
  7. METOPROLOL [Concomitant]
     Active Substance: METOPROLOL
     Indication: Product used for unknown indication
     Dosage: 50 MILLIGRAM
     Route: 065
     Dates: start: 20031030
  8. ROSUVASTATIN [Concomitant]
     Active Substance: ROSUVASTATIN
     Indication: Product used for unknown indication
     Dosage: 20 MILLIGRAM
     Route: 065
     Dates: start: 20031030
  9. RIVAROXABAN [Concomitant]
     Active Substance: RIVAROXABAN
     Indication: Product used for unknown indication
     Dosage: 20 MILLIGRAM
     Route: 065
     Dates: start: 20180821

REACTIONS (2)
  - Pyrexia [Recovered/Resolved]
  - Encephalitis [Unknown]

NARRATIVE: CASE EVENT DATE: 20180930
